FAERS Safety Report 5546926-7 (Version None)
Quarter: 2007Q4

REPORT INFORMATION
  Report Type: 
  Country: None (occurrence: None)
  Receive Date: 20071211
  Receipt Date: 20070216
  Transmission Date: 20080405
  Serious: No
  Sender: FDA-Public Use
  Company Number: US-AMGEN-KDL211575

PATIENT
  Sex: Female

DRUGS (3)
  1. ENBREL [Suspect]
     Indication: POLYMYOSITIS
     Route: 058
     Dates: start: 20050701
  2. IMURAN [Concomitant]
     Dates: start: 20060101
  3. METHOTREXATE [Concomitant]
     Dates: start: 19920101

REACTIONS (3)
  - NASOPHARYNGITIS [None]
  - PHARYNGOLARYNGEAL PAIN [None]
  - PNEUMONIA [None]
